FAERS Safety Report 6890631-1 (Version None)
Quarter: 2010Q3

REPORT INFORMATION
  Report Type: 
  Country: None (occurrence: None)
  Receive Date: 20100731
  Receipt Date: 20090114
  Transmission Date: 20110219
  Serious: No
  Sender: FDA-Public Use
  Company Number: US-PFIZER INC-2009156223

PATIENT
  Sex: Female
  Weight: 63.502 kg

DRUGS (2)
  1. LIPITOR [Suspect]
     Indication: BLOOD CHOLESTEROL INCREASED
     Dates: start: 20010101, end: 20081201
  2. HYZAAR [Concomitant]
     Indication: HYPERTENSION
     Dosage: UNK

REACTIONS (1)
  - RASH [None]
